FAERS Safety Report 9728244 (Version 1)
Quarter: 2013Q4

REPORT INFORMATION
  Report Type: Spontaneous
  Country: BE (occurrence: BE)
  Receive Date: 20131204
  Receipt Date: 20131204
  Transmission Date: 20140711
  Serious: Yes (Other)
  Sender: FDA-Public Use
  Company Number: BE-JNJFOC-20131117287

PATIENT
  Age: 63 Year
  Sex: Female

DRUGS (3)
  1. REMICADE [Suspect]
     Indication: CROHN^S DISEASE
     Route: 042
     Dates: start: 201301
  2. SALAZOPYRINE [Concomitant]
     Route: 065
  3. PANTOMED [Concomitant]
     Route: 065

REACTIONS (1)
  - Chronic lymphocytic leukaemia [Unknown]
